FAERS Safety Report 24729257 (Version 2)
Quarter: 2024Q4

REPORT INFORMATION
  Report Type: Report from Study
  Country: CA (occurrence: CA)
  Receive Date: 20241213
  Receipt Date: 20241224
  Transmission Date: 20250114
  Serious: Yes (Other)
  Sender: UCB
  Company Number: CA-UCBSA-2024055944

PATIENT
  Sex: Female

DRUGS (10)
  1. CERTOLIZUMAB PEGOL [Suspect]
     Active Substance: CERTOLIZUMAB PEGOL
     Indication: Rheumatoid arthritis
     Dosage: 400 MILLIGRAM, EV 2 WEEKS(QOW)
     Route: 058
     Dates: start: 20230316
  2. CERTOLIZUMAB PEGOL [Suspect]
     Active Substance: CERTOLIZUMAB PEGOL
     Dosage: 200 MILLIGRAM, EV 2 WEEKS(QOW)
     Route: 058
     Dates: start: 202411
  3. PREGABALIN [Concomitant]
     Active Substance: PREGABALIN
     Indication: Fibromyalgia
     Dosage: UNK
  4. LEVOTHYROXINE [Concomitant]
     Active Substance: LEVOTHYROXINE
     Indication: Hypothyroidism
     Dosage: UNK
  5. LANSOPRAZOLE [Concomitant]
     Active Substance: LANSOPRAZOLE
     Indication: Gastrooesophageal reflux disease
     Dosage: UNK
  6. FERROUS GLUCONATE [Concomitant]
     Active Substance: FERROUS GLUCONATE
     Indication: Anaemia
     Dosage: UNK
  7. CITALOPRAM [Concomitant]
     Active Substance: CITALOPRAM
     Indication: Depression
     Dosage: UNK
  8. ACEBUTOLOL [Concomitant]
     Active Substance: ACEBUTOLOL
     Indication: Hypertension
     Dosage: UNK
  9. HYDROMORPHONE [Concomitant]
     Active Substance: HYDROMORPHONE
     Indication: Fibromyalgia
     Dosage: UNK
  10. ALLOPURINOL [Concomitant]
     Active Substance: ALLOPURINOL
     Indication: Depression
     Dosage: UNK

REACTIONS (3)
  - Rheumatoid arthritis [Unknown]
  - Decreased immune responsiveness [Recovering/Resolving]
  - Infection [Recovering/Resolving]

NARRATIVE: CASE EVENT DATE: 20240101
